FAERS Safety Report 9984033 (Version 2)
Quarter: 2014Q1

REPORT INFORMATION
  Report Type: Spontaneous
  Country: US (occurrence: US)
  Receive Date: 20140307
  Receipt Date: 20140307
  Transmission Date: 20141002
  Serious: Yes (Hospitalization, Other)
  Sender: FDA-Public Use
  Company Number: US-ABBVIE-13P-163-1154361-00

PATIENT
  Age: 45 Year
  Sex: Female
  Weight: 62.65 kg

DRUGS (11)
  1. HUMIRA [Suspect]
     Indication: PSORIASIS
     Dates: start: 2011
  2. HUMIRA [Suspect]
     Dates: start: 20131125
  3. UNKNOWN BIRTH CONTROL [Concomitant]
     Indication: CONTRACEPTION
  4. WELLBUTRIN [Concomitant]
     Indication: DEPRESSION
  5. PROZAC [Concomitant]
     Indication: DEPRESSION
  6. VITAMIN B [Concomitant]
     Indication: VITAMIN SUPPLEMENTATION
  7. VITAMIN D [Concomitant]
     Indication: VITAMIN SUPPLEMENTATION
  8. SERTRALINE [Concomitant]
     Indication: ANXIETY
  9. BUPROPRION [Concomitant]
     Indication: ANXIETY
  10. DESOXIMETASONE [Concomitant]
     Indication: PSORIASIS
  11. DOVONEX [Concomitant]
     Indication: PSORIASIS

REACTIONS (4)
  - Pneumonia bacterial [Recovered/Resolved]
  - Urticaria [Recovered/Resolved]
  - White blood cell count increased [Not Recovered/Not Resolved]
  - Psoriasis [Unknown]
